FAERS Safety Report 5020622-7 (Version None)
Quarter: 2006Q2

REPORT INFORMATION
  Report Type: 
  Country: None (occurrence: None)
  Receive Date: 20060607
  Receipt Date: 20060421
  Transmission Date: 20061013
  Serious: Yes (Other)
  Sender: FDA-Public Use
  Company Number: JP-MERCK-0605USA02475

PATIENT
  Age: 79 Year
  Sex: Male
  Weight: 52 kg

DRUGS (7)
  1. ZOCOR [Suspect]
     Indication: HYPERLIPIDAEMIA
     Route: 048
     Dates: start: 20051018, end: 20051020
  2. DIOVAN [Concomitant]
     Indication: HYPERTENSION
     Route: 048
  3. LANIRAPID [Concomitant]
     Indication: ATRIAL FIBRILLATION
     Route: 048
  4. CIBENOL [Concomitant]
     Indication: ATRIAL FIBRILLATION
     Route: 048
  5. CELTECT [Concomitant]
     Indication: ECZEMA
     Route: 048
  6. PANALDINE [Concomitant]
     Indication: CEREBRAL INFARCTION
     Route: 048
  7. MEVALOTIN [Concomitant]
     Route: 048
     Dates: end: 20051017

REACTIONS (3)
  - DIZZINESS [None]
  - ECCHYMOSIS [None]
  - PYREXIA [None]
